FAERS Safety Report 8583845 (Version 3)
Quarter: 2012Q4

REPORT INFORMATION
  Report Type: 
  Country: US (occurrence: US)
  Receive Date: 20120529
  Receipt Date: 20121031
  Transmission Date: 20130627
  Serious: Yes (Life-Threatening, Hospitalization)
  Sender: FDA-Public Use
  Company Number: US-ASTRAZENECA-2012SE33041

PATIENT
  Age: 64 Year
  Sex: Female

DRUGS (3)
  1. SYMBICORT PMDI [Suspect]
     Route: 055
  2. MOMETASONE [Concomitant]
     Route: 055
  3. STEROIDS [Concomitant]
     Route: 048

REACTIONS (3)
  - Ill-defined disorder [Unknown]
  - Asthma [Unknown]
  - Asthma [Unknown]
